FAERS Safety Report 4970366-2 (Version None)
Quarter: 2006Q2

REPORT INFORMATION
  Report Type: 
  Country: None (occurrence: None)
  Receive Date: 20060412
  Receipt Date: 20060410
  Transmission Date: 20061013
  Serious: Yes (Death)
  Sender: FDA-Public Use
  Company Number: PHBS2006JP05249

PATIENT
  Age: 52 Year
  Sex: Female

DRUGS (5)
  1. NEORAL [Suspect]
     Indication: NEPHROTIC SYNDROME
     Dosage: 100 MG/DAY
     Route: 048
     Dates: start: 20060403, end: 20060409
  2. PREDONINE [Suspect]
     Dosage: 6 DF/DAY
     Route: 048
     Dates: start: 20050601, end: 20060409
  3. WARFARIN SODIUM [Concomitant]
  4. COMELIAN [Concomitant]
  5. OMEPRAZON [Concomitant]

REACTIONS (3)
  - COMPLETED SUICIDE [None]
  - INSOMNIA [None]
  - MENTAL DISORDER [None]
